FAERS Safety Report 22050319 (Version 1)
Quarter: 2023Q1

REPORT INFORMATION
  Report Type: Spontaneous
  Country: US (occurrence: US)
  Receive Date: 20230301
  Receipt Date: 20230301
  Transmission Date: 20230418
  Serious: Yes (Death, Hospitalization, Other)
  Sender: FDA-Public Use
  Company Number: US-ViiV Healthcare Limited-US2023GSK028410

PATIENT

DRUGS (2)
  1. DOLUTEGRAVIR [Suspect]
     Active Substance: DOLUTEGRAVIR
     Indication: HIV infection
     Dosage: UNK
  2. ISONIAZID [Suspect]
     Active Substance: ISONIAZID
     Indication: Prophylaxis
     Dosage: UNK

REACTIONS (7)
  - Hepatic encephalopathy [Fatal]
  - Hepatotoxicity [Unknown]
  - Jaundice [Unknown]
  - Diarrhoea [Unknown]
  - Seizure [Unknown]
  - Mental status changes [Unknown]
  - Toxicity to various agents [Unknown]
